FAERS Safety Report 5499654-0 (Version None)
Quarter: 2007Q4

REPORT INFORMATION
  Report Type: 
  Country: None (occurrence: None)
  Receive Date: 20071026
  Receipt Date: 20071016
  Transmission Date: 20080405
  Serious: Yes (Hospitalization, Other)
  Sender: FDA-Public Use
  Company Number: DE-PFIZER INC-2007042460

PATIENT
  Sex: Male
  Weight: 80 kg

DRUGS (9)
  1. EXUBERA [Suspect]
     Indication: DIABETES MELLITUS
     Dosage: DAILY DOSE:8MG-TEXT:3 MG - 2 MG - 3 MG
     Route: 055
     Dates: start: 20070327, end: 20070416
  2. AMARYL [Concomitant]
     Route: 048
     Dates: start: 20040101, end: 20070327
  3. EZETIMIBE/SIMVASTATIN [Concomitant]
     Route: 048
  4. SIMVASTATIN [Concomitant]
     Route: 048
  5. NEBILET [Concomitant]
     Route: 048
  6. NORVASC [Concomitant]
     Route: 048
  7. RAMIPRIL [Concomitant]
     Route: 048
  8. ASPIRIN [Concomitant]
     Route: 048
  9. NOVORAPID [Concomitant]
     Route: 058

REACTIONS (4)
  - ANGIOEDEMA [None]
  - ANTI-INSULIN ANTIBODY INCREASED [None]
  - DYSPNOEA [None]
  - FORCED EXPIRATORY VOLUME DECREASED [None]
